FAERS Safety Report 10182497 (Version 3)
Quarter: 2014Q2

REPORT INFORMATION
  Report Type: Spontaneous
  Country: DE (occurrence: DE)
  Receive Date: 20140520
  Receipt Date: 20140521
  Transmission Date: 20141212
  Serious: Yes (Other)
  Sender: FDA-Public Use
  Company Number: DE-JNJFOC-20140314377

PATIENT
  Age: 64 Year
  Sex: Male
  Weight: 68.03 kg

DRUGS (6)
  1. XARELTO [Suspect]
     Indication: CEREBROVASCULAR ACCIDENT PROPHYLAXIS
     Route: 048
     Dates: start: 201310, end: 201403
  2. XARELTO [Suspect]
     Indication: ATRIAL FIBRILLATION
     Route: 048
     Dates: start: 201310, end: 201403
  3. METOPROLOL [Concomitant]
     Indication: ARRHYTHMIA
     Route: 048
  4. DIGITOXIN [Concomitant]
     Indication: CARDIAC FAILURE
     Route: 048
  5. ALDACTONE [Concomitant]
     Indication: CARDIAC PACEMAKER INSERTION
     Route: 048
     Dates: start: 201310
  6. TORASEMID [Concomitant]
     Indication: CARDIAC PACEMAKER INSERTION
     Route: 048
     Dates: start: 201310

REACTIONS (11)
  - Dermatitis allergic [Recovered/Resolved]
  - Epistaxis [Recovered/Resolved]
  - Pulmonary oedema [Recovered/Resolved]
  - Pericardial effusion [Recovered/Resolved]
  - Acne [Unknown]
  - Anxiety [Unknown]
  - Sleep disorder [Recovered/Resolved]
  - Hypotension [Recovered/Resolved]
  - Decreased appetite [Recovered/Resolved]
  - Malaise [Recovered/Resolved]
  - Abnormal weight gain [Recovered/Resolved]
